FAERS Safety Report 6523192-7 (Version None)
Quarter: 2009Q4

REPORT INFORMATION
  Report Type: 
  Country: None (occurrence: None)
  Receive Date: 20091222
  Receipt Date: 20091206
  Transmission Date: 20100525
  Serious: Yes (Life-Threatening, Hospitalization)
  Sender: FDA-Public Use
  Company Number: GB-DEXPHARM-20092125

PATIENT
  Age: 39 Year
  Sex: Male

DRUGS (3)
  1. OMEPRAZOLE [Suspect]
     Indication: GASTRITIS
     Dosage: 20 MG MILLIGRAM(S) SEP DOSAGES/ INTERVAL: 1 IN 1 D, ORAL
     Route: 048
     Dates: start: 20090911, end: 20091128
  2. OLANZAPINE [Suspect]
     Indication: SCHIZOPHRENIA
     Dosage: 15 MG MILLIGRAM(S) SEP. DOSAGES / INTERVAL: 1 IN 1 DAY, ORAL
     Route: 048
  3. WARFARIN SODIUM [Suspect]
     Indication: DEEP VEIN THROMBOSIS
     Dosage: 5 MG MILLIGRAM(S) SEP. DOSAGES / INTERVAAL; 1 IN 1 D, ORAL
     Route: 048

REACTIONS (4)
  - HAEMODIALYSIS [None]
  - RENAL FAILURE [None]
  - RENAL FAILURE ACUTE [None]
  - RHABDOMYOLYSIS [None]
